FAERS Safety Report 18839758 (Version 1)
Quarter: 2021Q1

REPORT INFORMATION
  Report Type: Report from Study
  Country: US (occurrence: US)
  Receive Date: 20210204
  Receipt Date: 20210204
  Transmission Date: 20210419
  Serious: No
  Sender: FDA-Public Use
  Company Number: US-EXELIXIS-CABO-20035563

PATIENT
  Sex: Female

DRUGS (14)
  1. FLUTICASONE PROPIONATE. [Concomitant]
     Active Substance: FLUTICASONE PROPIONATE
  2. VITAMIN C [Concomitant]
     Active Substance: ASCORBIC ACID
  3. PROVENTIL [Concomitant]
     Active Substance: ALBUTEROL
  4. MUCINEX [Concomitant]
     Active Substance: GUAIFENESIN
  5. SYNTHROID [Concomitant]
     Active Substance: LEVOTHYROXINE SODIUM
  6. COMETRIQ [Suspect]
     Active Substance: CABOZANTINIB S-MALATE
     Indication: THYROID CANCER
     Dosage: 40 MG, QD
     Route: 048
     Dates: start: 20201021
  7. TESSALON [Concomitant]
     Active Substance: BENZONATATE
  8. VITAMIN D3 [Concomitant]
     Active Substance: CHOLECALCIFEROL
  9. ZOFRAN [Concomitant]
     Active Substance: ONDANSETRON HYDROCHLORIDE
     Dosage: UNK
  10. NORVASC [Concomitant]
     Active Substance: AMLODIPINE BESYLATE
  11. AZELASTINE HCL [Concomitant]
     Active Substance: AZELASTINE HYDROCHLORIDE
  12. CODEINE GUAIFENESIN [Concomitant]
     Active Substance: CODEINE PHOSPHATE\GUAIFENESIN
  13. TYLENOL [Concomitant]
     Active Substance: ACETAMINOPHEN
  14. VALIUM [Concomitant]
     Active Substance: DIAZEPAM

REACTIONS (2)
  - Illness [Unknown]
  - Oropharyngeal pain [Unknown]
